FAERS Safety Report 6040440-0 (Version None)
Quarter: 2009Q1

REPORT INFORMATION
  Report Type: 
  Country: None (occurrence: None)
  Receive Date: 20090116
  Receipt Date: 20070208
  Transmission Date: 20090719
  Serious: No
  Sender: FDA-Public Use
  Company Number: US-BRISTOL-MYERS SQUIBB COMPANY-14109110

PATIENT
  Sex: Female

DRUGS (3)
  1. ABILIFY [Suspect]
     Indication: BIPOLAR DISORDER
     Route: 048
  2. CYMBALTA [Concomitant]
  3. ZYPREXA [Concomitant]

REACTIONS (2)
  - FEELING OF DESPAIR [None]
  - RESTLESSNESS [None]
